FAERS Safety Report 7393676-0 (Version None)
Quarter: 2011Q2

REPORT INFORMATION
  Report Type: 
  Country: None (occurrence: None)
  Receive Date: 20110405
  Receipt Date: 20110322
  Transmission Date: 20111010
  Serious: No
  Sender: FDA-Public Use
  Company Number: US-JNJFOC-20110311313

PATIENT
  Sex: Male

DRUGS (7)
  1. LISINOPRIL [Concomitant]
     Indication: HYPERTENSION
     Route: 048
  2. EFFEXOR [Concomitant]
     Indication: ANXIETY
     Route: 048
  3. NEXIUM [Concomitant]
     Indication: GASTRIC DISORDER
     Route: 048
  4. FENTANYL-100 [Suspect]
     Indication: ARTHRITIS
     Route: 062
  5. FENTANYL-100 [Suspect]
     Indication: FIBROMYALGIA
     Route: 062
  6. AMBIEN [Concomitant]
     Indication: SLEEP DISORDER
     Route: 048
  7. METOPROLOL [Concomitant]
     Indication: HYPERTENSION
     Route: 048

REACTIONS (7)
  - HEART RATE INCREASED [None]
  - NERVOUSNESS [None]
  - ANXIETY [None]
  - PRODUCT ADHESION ISSUE [None]
  - WRONG TECHNIQUE IN DRUG USAGE PROCESS [None]
  - HYPERTENSION [None]
  - HEADACHE [None]
